FAERS Safety Report 25548566 (Version 1)
Quarter: 2025Q3

REPORT INFORMATION
  Report Type: Spontaneous
  Country: GB (occurrence: GB)
  Receive Date: 20250714
  Receipt Date: 20250714
  Transmission Date: 20251021
  Serious: Yes (Other)
  Sender: AUROBINDO
  Company Number: GB-MHRA-MED-202507011306422950-CKJZS

PATIENT

DRUGS (1)
  1. DULOXETINE [Suspect]
     Active Substance: DULOXETINE
     Indication: Neuropathy peripheral
     Route: 065

REACTIONS (4)
  - Confusional state [Unknown]
  - Dysphonia [Unknown]
  - Dizziness [Unknown]
  - Decreased appetite [Unknown]
